FAERS Safety Report 4612335-8 (Version None)
Quarter: 2005Q1

REPORT INFORMATION
  Report Type: 
  Country: None (occurrence: None)
  Receive Date: 20050316
  Receipt Date: 20050228
  Transmission Date: 20050727
  Serious: Yes (Other)
  Sender: FDA-Public Use
  Company Number: US_0503113796

PATIENT
  Age: 21 Year
  Sex: Female

DRUGS (3)
  1. PROZAC [Suspect]
  2. GABITRIL [Concomitant]
  3. LEXAPRO [Concomitant]

REACTIONS (4)
  - CONVULSION [None]
  - INTENTIONAL MISUSE [None]
  - LOSS OF CONSCIOUSNESS [None]
  - REFUSAL OF TREATMENT BY PATIENT [None]
